FAERS Safety Report 7951869-5 (Version None)
Quarter: 2011Q4

REPORT INFORMATION
  Report Type: 
  Country: None (occurrence: None)
  Receive Date: 20111201
  Receipt Date: 20111201
  Transmission Date: 20120403
  Serious: Yes (Other)
  Sender: FDA-Public Use
  Company Number: None

PATIENT
  Sex: Female
  Weight: 65.77 kg

DRUGS (2)
  1. RESTYLANE [Suspect]
     Indication: SKIN COSMETIC PROCEDURE
     Dosage: 1 X 1 ML
     Route: 003
     Dates: start: 20111115, end: 20111115
  2. PERLANE [Concomitant]
     Dosage: 1 X 1 ML

REACTIONS (3)
  - LIP SWELLING [None]
  - SWELLING FACE [None]
  - SPEECH DISORDER [None]
